FAERS Safety Report 7962449-X (Version None)
Quarter: 2011Q4

REPORT INFORMATION
  Report Type: 
  Country: None (occurrence: None)
  Receive Date: 20111207
  Receipt Date: 20111205
  Transmission Date: 20120403
  Serious: Yes (Death)
  Sender: FDA-Public Use
  Company Number: US-PFIZER INC-IDA-00479

PATIENT
  Age: 50 Year
  Sex: Female

DRUGS (7)
  1. DIPHENHYDRAMINE HCL [Suspect]
     Dosage: UNK
     Route: 048
  2. TRAZODONE HCL [Suspect]
     Dosage: UNK
     Route: 048
  3. PROPRANOLOL HCL [Suspect]
     Dosage: UNK
     Route: 048
  4. BUSPIRONE HCL [Suspect]
     Dosage: UNK
     Route: 048
  5. TEMAZEPAM [Suspect]
     Dosage: UNK
     Route: 048
  6. DIAZEPAM [Suspect]
     Dosage: UNK
     Route: 048
  7. DOXEPIN HCL [Suspect]
     Dosage: UNK
     Route: 048

REACTIONS (3)
  - COMPLETED SUICIDE [None]
  - TOXICITY TO VARIOUS AGENTS [None]
  - CARDIO-RESPIRATORY ARREST [None]
